FAERS Safety Report 23633234 (Version 1)
Quarter: 2024Q1

REPORT INFORMATION
  Report Type: Spontaneous
  Country: US (occurrence: None)
  Receive Date: 20240314
  Receipt Date: 20240314
  Transmission Date: 20240409
  Serious: No
  Sender: FDA-Public Use
  Company Number: None

PATIENT
  Age: 75 Year
  Sex: Male

DRUGS (1)
  1. LENALIDOMIDE [Suspect]
     Active Substance: LENALIDOMIDE
     Indication: Follicular lymphoma stage I
     Dosage: FREQUENCY : DAILY;?
     Route: 048
     Dates: start: 20230706

REACTIONS (6)
  - Cough [None]
  - Nasal congestion [None]
  - Oropharyngeal pain [None]
  - Chills [None]
  - Feeling hot [None]
  - Body temperature increased [None]

NARRATIVE: CASE EVENT DATE: 20240311
